FAERS Safety Report 6561102-7 (Version None)
Quarter: 2010Q1

REPORT INFORMATION
  Report Type: 
  Country: None (occurrence: None)
  Receive Date: 20100130
  Receipt Date: 20091001
  Transmission Date: 20100710
  Serious: No
  Sender: FDA-Public Use
  Company Number: US-ABBOTT-09P-163-0600858-00

PATIENT
  Sex: Female

DRUGS (6)
  1. HUMIRA [Suspect]
     Indication: RHEUMATOID ARTHRITIS
     Route: 058
  2. HUMIRA [Suspect]
     Dosage: PRE-FILLED SYRINGE
     Route: 058
  3. ALBUTEROL [Concomitant]
     Indication: ASTHMA
     Route: 055
  4. CELEXA [Concomitant]
     Indication: BIPOLAR DISORDER
  5. XANAX [Concomitant]
     Indication: BIPOLAR DISORDER
  6. SEROQUEL [Concomitant]
     Indication: BIPOLAR DISORDER

REACTIONS (2)
  - ARTHRALGIA [None]
  - INAPPROPRIATE SCHEDULE OF DRUG ADMINISTRATION [None]
